FAERS Safety Report 8057026-9 (Version None)
Quarter: 2012Q1

REPORT INFORMATION
  Report Type: 
  Country: None (occurrence: None)
  Receive Date: 20120119
  Receipt Date: 20120113
  Transmission Date: 20120608
  Serious: Yes (Hospitalization)
  Sender: FDA-Public Use
  Company Number: US-B.I. PHARMACEUTICALS,INC./RIDGEFIELD-2012-BP-00807BP

PATIENT
  Sex: Female

DRUGS (8)
  1. IRON [Concomitant]
     Indication: ROUTINE HEALTH MAINTENANCE
  2. ASPIRIN [Concomitant]
     Indication: ROUTINE HEALTH MAINTENANCE
  3. PRADAXA [Suspect]
     Indication: ATRIAL FIBRILLATION
     Dosage: 300 MG
     Route: 048
     Dates: start: 20110301, end: 20110401
  4. LISINOPRIL [Concomitant]
  5. CARVEDILOL [Concomitant]
  6. FLECAINIDE ACETATE [Concomitant]
  7. ASCORBIC ACID [Concomitant]
     Indication: ROUTINE HEALTH MAINTENANCE
  8. VITAMIN 12 [Concomitant]
     Indication: ROUTINE HEALTH MAINTENANCE

REACTIONS (3)
  - HAEMORRHAGE [None]
  - FATIGUE [None]
  - MENORRHAGIA [None]
